FAERS Safety Report 26017446 (Version 1)
Quarter: 2025Q4

REPORT INFORMATION
  Report Type: Report from Study
  Country: US (occurrence: US)
  Receive Date: 20251110
  Receipt Date: 20251110
  Transmission Date: 20260118
  Serious: Yes (Other)
  Sender: ROCHE
  Company Number: US-ROCHE-10000428441

PATIENT
  Age: 36 Year
  Sex: Female

DRUGS (6)
  1. PULMOZYME [Suspect]
     Active Substance: DORNASE ALFA
     Indication: Cystic fibrosis
     Dosage: NEBULIZE THE CONTENTS OF 1 VIAL(S) (2.5MG) EVERY DAY?FORMULATION: AMPUL, DOSE: 1 MG
     Route: 065
  2. PULMOZYME [Suspect]
     Active Substance: DORNASE ALFA
     Indication: Lung disorder
  3. PULMOZYME [Suspect]
     Active Substance: DORNASE ALFA
     Indication: Respiratory disorder
  4. PULMOZYME [Suspect]
     Active Substance: DORNASE ALFA
     Indication: Pseudomonas infection
  5. TRIKAFTA [Concomitant]
     Active Substance: ELEXACAFTOR\IVACAFTOR\TEZACAFTOR
  6. SYMBICORT [Concomitant]
     Active Substance: BUDESONIDE\FORMOTEROL FUMARATE DIHYDRATE

REACTIONS (2)
  - Illness [Unknown]
  - Pneumonia [Unknown]
